FAERS Safety Report 25519303 (Version 1)
Quarter: 2025Q3

REPORT INFORMATION
  Report Type: Spontaneous
  Country: EU (occurrence: EU)
  Receive Date: 20250704
  Receipt Date: 20250704
  Transmission Date: 20251020
  Serious: Yes (Other)
  Sender: TEVA
  Company Number: None

PATIENT
  Age: 33 Year
  Sex: Male
  Weight: 75 kg

DRUGS (2)
  1. DIAZEPAM [Suspect]
     Active Substance: DIAZEPAM
     Indication: Toxicity to various agents
     Route: 048
     Dates: start: 20250602, end: 20250602
  2. DIAZEPAM [Concomitant]
     Active Substance: DIAZEPAM
     Indication: Toxicity to various agents
     Route: 048

REACTIONS (3)
  - Arrhythmia [Recovered/Resolved]
  - Nausea [Recovered/Resolved]
  - Headache [Recovered/Resolved]

NARRATIVE: CASE EVENT DATE: 20250602
